FAERS Safety Report 5932058-2 (Version None)
Quarter: 2008Q4

REPORT INFORMATION
  Report Type: 
  Country: None (occurrence: None)
  Receive Date: 20081027
  Receipt Date: 20081017
  Transmission Date: 20090506
  Serious: Yes (Other)
  Sender: FDA-Public Use
  Company Number: US-PFIZER INC-2008088698

PATIENT
  Sex: Male
  Weight: 120 kg

DRUGS (4)
  1. CELEBREX [Suspect]
     Indication: ARTHRITIS
     Route: 048
     Dates: start: 20070501, end: 20070801
  2. LISINOPRIL [Concomitant]
  3. PLAVIX [Concomitant]
  4. VERAPAMIL [Concomitant]

REACTIONS (4)
  - DRUG INEFFECTIVE [None]
  - HIP ARTHROPLASTY [None]
  - RENAL IMPAIRMENT [None]
  - VITAMIN D ABNORMAL [None]
